FAERS Safety Report 14235777 (Version 2)
Quarter: 2018Q1

REPORT INFORMATION
  Report Type: Spontaneous
  Country: US (occurrence: US)
  Receive Date: 20171129
  Receipt Date: 20180118
  Transmission Date: 20180508
  Serious: Yes (Other)
  Sender: FDA-Public Use
  Company Number: US-GLAXOSMITHKLINE-US2017GSK181117

PATIENT
  Age: 59 Year
  Sex: Female
  Weight: 75.74 kg

DRUGS (1)
  1. BREO ELLIPTA [Suspect]
     Active Substance: FLUTICASONE FUROATE\VILANTEROL TRIFENATATE
     Indication: PRODUCT USED FOR UNKNOWN INDICATION
     Dosage: UNK, U
     Dates: start: 201706

REACTIONS (2)
  - Pharyngeal operation [Unknown]
  - Dysphonia [Unknown]

NARRATIVE: CASE EVENT DATE: 201706
